FAERS Safety Report 11992662 (Version 1)
Quarter: 2016Q1

REPORT INFORMATION
  Report Type: Spontaneous
  Country: US (occurrence: None)
  Receive Date: 20160202
  Receipt Date: 20160202
  Transmission Date: 20160526
  Serious: Yes (Other)
  Sender: FDA-Public Use
  Company Number: None

PATIENT
  Age: 42 Year
  Sex: Female

DRUGS (1)
  1. HUMIRA [Suspect]
     Active Substance: ADALIMUMAB
     Indication: PSORIASIS
     Dosage: QOW?12/31/16 TO 1/22/16
     Route: 058
     Dates: end: 20160122

REACTIONS (2)
  - Pharyngitis streptococcal [None]
  - Drug dose omission [None]

NARRATIVE: CASE EVENT DATE: 20160122
